FAERS Safety Report 6682599-8 (Version None)
Quarter: 2010Q2

REPORT INFORMATION
  Report Type: 
  Country: None (occurrence: None)
  Receive Date: 20100414
  Receipt Date: 20100414
  Transmission Date: 20101027
  Serious: Yes (Other)
  Sender: FDA-Public Use
  Company Number: None

PATIENT
  Age: 56 Year
  Sex: Female
  Weight: 89.8122 kg

DRUGS (4)
  1. LUNESTA [Suspect]
     Indication: INSOMNIA
     Dosage: 1 PER NIGHT
     Dates: start: 20080202, end: 20100324
  2. LITHOUM [Concomitant]
  3. CELEXA [Concomitant]
  4. TRAZODONE HCL [Concomitant]

REACTIONS (5)
  - AGGRESSION [None]
  - DEPRESSED MOOD [None]
  - DEPRESSION [None]
  - SELF-INJURIOUS IDEATION [None]
  - SUICIDAL IDEATION [None]
